FAERS Safety Report 5775663-9 (Version None)
Quarter: 2008Q2

REPORT INFORMATION
  Report Type: 
  Country: None (occurrence: None)
  Receive Date: 20080617
  Receipt Date: 20080605
  Transmission Date: 20081010
  Serious: Yes (Other)
  Sender: FDA-Public Use
  Company Number: BR-PFIZER INC-2008047982

PATIENT
  Sex: Female
  Weight: 71 kg

DRUGS (4)
  1. DOSTINEX [Suspect]
     Indication: HYPERPROLACTINAEMIA
     Route: 048
  2. DILACORON [Concomitant]
  3. MODURETIC 5-50 [Concomitant]
  4. DIANE [Concomitant]

REACTIONS (2)
  - BLOOD PROLACTIN INCREASED [None]
  - DRUG INEFFECTIVE [None]
